FAERS Safety Report 8214583-7 (Version None)
Quarter: 2012Q1

REPORT INFORMATION
  Report Type: 
  Country: None (occurrence: None)
  Receive Date: 20120316
  Receipt Date: 20120306
  Transmission Date: 20120608
  Serious: Yes (Other)
  Sender: FDA-Public Use
  Company Number: FR-JNJFOC-20120304525

PATIENT

DRUGS (1)
  1. INFLIXIMAB, RECOMBINANT [Suspect]
     Indication: PRODUCT USED FOR UNKNOWN INDICATION
     Route: 042

REACTIONS (6)
  - INFUSION RELATED REACTION [None]
  - INFECTION [None]
  - BRONCHOSPASM [None]
  - ECZEMA [None]
  - DRUG INEFFECTIVE [None]
  - NEOPLASM [None]
